FAERS Safety Report 7878293-8 (Version None)
Quarter: 2011Q4

REPORT INFORMATION
  Report Type: 
  Country: None (occurrence: None)
  Receive Date: 20111101
  Receipt Date: 20111025
  Transmission Date: 20120403
  Serious: Yes (Hospitalization)
  Sender: FDA-Public Use
  Company Number: JP-JNJFOC-20111009529

PATIENT

DRUGS (1)
  1. FENTANYL-100 [Suspect]
     Indication: CANCER PAIN
     Route: 062

REACTIONS (3)
  - HOSPITALISATION [None]
  - DRUG INEFFECTIVE [None]
  - WRONG TECHNIQUE IN DRUG USAGE PROCESS [None]
